FAERS Safety Report 9719355 (Version 3)
Quarter: 2014Q2

REPORT INFORMATION
  Report Type: Report from Study
  Country: US (occurrence: US)
  Receive Date: 20131127
  Receipt Date: 20140521
  Transmission Date: 20141212
  Serious: Yes (Other)
  Sender: FDA-Public Use
  Company Number: US-ROCHE-1287896

PATIENT
  Sex: Female

DRUGS (1)
  1. BONIVA [Suspect]
     Indication: SENILE OSTEOPOROSIS
     Dosage: WITH A FULL GLASS OF WATER.
     Route: 048

REACTIONS (6)
  - Toxicity to various agents [Unknown]
  - Pain [Unknown]
  - Bone disorder [Unknown]
  - Bronchitis [Unknown]
  - Device toxicity [Unknown]
  - Device toxicity [Unknown]
